FAERS Safety Report 6083807-7 (Version None)
Quarter: 2009Q1

REPORT INFORMATION
  Report Type: 
  Country: None (occurrence: None)
  Receive Date: 20090217
  Receipt Date: 20090202
  Transmission Date: 20090719
  Serious: No
  Sender: FDA-Public Use
  Company Number: 163881

PATIENT
  Age: 48 Year
  Sex: Male
  Weight: 100.6985 kg

DRUGS (6)
  1. PROPOFOL [Suspect]
     Indication: DRUG USE FOR UNKNOWN INDICATION
     Dosage: INTRAVENOUS
     Route: 042
     Dates: start: 20081106, end: 20081106
  2. FENTANYL [Concomitant]
  3. MIDAZOLAM HCL [Concomitant]
  4. ONDANSETRON [Concomitant]
  5. REGLAN [Concomitant]
  6. TORADOL [Concomitant]

REACTIONS (1)
  - OCULAR HYPERAEMIA [None]
